FAERS Safety Report 8035576-9 (Version None)
Quarter: 2012Q1

REPORT INFORMATION
  Report Type: 
  Country: None (occurrence: None)
  Receive Date: 20120110
  Receipt Date: 20120110
  Transmission Date: 20120608
  Serious: No
  Sender: FDA-Public Use
  Company Number: None

PATIENT
  Sex: Female
  Weight: 47.1741 kg

DRUGS (1)
  1. SIMVASTATIN [Suspect]
     Indication: BLOOD CHOLESTEROL
     Dosage: 20 MG 1 X DAY
     Dates: start: 20110401, end: 20111201

REACTIONS (4)
  - SURGICAL FAILURE [None]
  - ROTATOR CUFF SYNDROME [None]
  - CHONDROPATHY [None]
  - PAIN IN EXTREMITY [None]
